FAERS Safety Report 24723352 (Version 2)
Quarter: 2025Q1

REPORT INFORMATION
  Report Type: Spontaneous
  Country: JP (occurrence: JP)
  Receive Date: 20241211
  Receipt Date: 20250222
  Transmission Date: 20250409
  Serious: Yes (Other)
  Sender: UCB
  Company Number: JP-UCBJ-CD202412188UCBPHAPROD

PATIENT
  Age: 5 Decade
  Sex: Male

DRUGS (1)
  1. CIMZIA [Suspect]
     Active Substance: CERTOLIZUMAB PEGOL
     Indication: Psoriatic arthropathy
     Route: 058

REACTIONS (1)
  - Colitis ulcerative [Recovered/Resolved]
